FAERS Safety Report 8768518 (Version 2)
Quarter: 2021Q1

REPORT INFORMATION
  Report Type: Other
  Country: BR (occurrence: BR)
  Receive Date: 20120905
  Receipt Date: 20210302
  Transmission Date: 20210420
  Serious: Yes (Other)
  Sender: FDA-Public Use
  Company Number: BR-ROCHE-1009382

PATIENT
  Weight: 2.07 kg

DRUGS (5)
  1. CEFTRIAXONE. [Suspect]
     Active Substance: CEFTRIAXONE
     Indication: PRODUCT USED FOR UNKNOWN INDICATION
     Route: 064
  2. PROPRANOLOL [Concomitant]
     Active Substance: PROPRANOLOL HYDROCHLORIDE
  3. DIPYRONE [Suspect]
     Active Substance: DIPYRONE
     Indication: PRODUCT USED FOR UNKNOWN INDICATION
     Route: 064
  4. MACRODANTIN [Concomitant]
     Active Substance: NITROFURANTOIN
  5. FUROSEMIDE. [Concomitant]
     Active Substance: FUROSEMIDE

REACTIONS (7)
  - Foetal distress syndrome [Unknown]
  - Small for dates baby [Unknown]
  - Foetal malpresentation [Unknown]
  - Low birth weight baby [Unknown]
  - Maternal exposure timing unspecified [Unknown]
  - Foetal growth restriction [Unknown]
  - Tachycardia foetal [Unknown]
